FAERS Safety Report 5604456-8 (Version None)
Quarter: 2008Q1

REPORT INFORMATION
  Report Type: 
  Country: None (occurrence: None)
  Receive Date: 20080123
  Receipt Date: 20080123
  Transmission Date: 20080703
  Serious: Yes (Life-Threatening)
  Sender: FDA-Public Use
  Company Number: None

PATIENT
  Sex: Female
  Weight: 77 kg

DRUGS (1)
  1. ZEID 20 MG ALTIA [Suspect]
     Dosage: 1 CAPSULE 1 EVERY NIGHT  JUST TOOK ONE DOSE
     Dates: start: 20080117, end: 20080118

REACTIONS (6)
  - DYSPNOEA [None]
  - FEELING ABNORMAL [None]
  - HEART RATE INCREASED [None]
  - INSOMNIA [None]
  - RASH GENERALISED [None]
  - URTICARIA [None]
